FAERS Safety Report 7408973-X (Version None)
Quarter: 2011Q2

REPORT INFORMATION
  Report Type: 
  Country: None (occurrence: None)
  Receive Date: 20110412
  Receipt Date: 20110330
  Transmission Date: 20111010
  Serious: Yes (Hospitalization, Other)
  Sender: FDA-Public Use
  Company Number: US-ELI_LILLY_AND_COMPANY-US201012005830

PATIENT
  Sex: Female

DRUGS (8)
  1. CELEBREX [Concomitant]
     Dosage: 200 MG, UNKNOWN
     Route: 065
  2. IRON [Concomitant]
  3. FORTEO [Suspect]
     Indication: OSTEOPOROSIS
     Dosage: 20 UG, QD
     Route: 065
     Dates: start: 20100501
  4. FORTEO [Suspect]
     Dosage: 20 UG, QD
     Route: 065
  5. VITAMINS [Concomitant]
  6. PRILOSEC [Concomitant]
  7. LIPITOR [Concomitant]
  8. ASPIRIN [Concomitant]

REACTIONS (5)
  - JOINT INJURY [None]
  - INJECTION SITE HAEMATOMA [None]
  - DEVICE DISLOCATION [None]
  - ARTHRALGIA [None]
  - BONE DISORDER [None]
